FAERS Safety Report 25371731 (Version 1)
Quarter: 2025Q2

REPORT INFORMATION
  Report Type: Spontaneous
  Country: ES (occurrence: None)
  Receive Date: 20250529
  Receipt Date: 20250529
  Transmission Date: 20250716
  Serious: Yes (Other)
  Sender: ADIENNE PHARMA & BIOTECH
  Company Number: ES-ADIENNEP-2025AD000337

PATIENT
  Sex: Male

DRUGS (2)
  1. THIOTEPA [Suspect]
     Active Substance: THIOTEPA
     Indication: Autologous haematopoietic stem cell transplant
  2. CARBOPLATIN [Suspect]
     Active Substance: CARBOPLATIN
     Indication: Autologous haematopoietic stem cell transplant

REACTIONS (2)
  - Metapneumovirus infection [Unknown]
  - Respiratory tract infection [Unknown]
